FAERS Safety Report 7230003-3 (Version None)
Quarter: 2011Q1

REPORT INFORMATION
  Report Type: 
  Country: None (occurrence: None)
  Receive Date: 20110117
  Receipt Date: 20110113
  Transmission Date: 20110831
  Serious: Yes (Other)
  Sender: FDA-Public Use
  Company Number: GXKR2011DE00570

PATIENT
  Sex: Female

DRUGS (1)
  1. ALENDRONATE [Suspect]
     Dosage: UNK
     Route: 048
     Dates: start: 20090901

REACTIONS (4)
  - OEDEMA PERIPHERAL [None]
  - PAIN IN EXTREMITY [None]
  - METATARSALGIA [None]
  - FOOT FRACTURE [None]
